FAERS Safety Report 20259269 (Version 1)
Quarter: 2021Q4

REPORT INFORMATION
  Report Type: Spontaneous
  Country: US (occurrence: US)
  Receive Date: 20211230
  Receipt Date: 20211230
  Transmission Date: 20220304
  Serious: No
  Sender: FDA-Public Use
  Company Number: US-PFIZER INC-202101706469

PATIENT
  Age: 59 Year
  Sex: Female

DRUGS (1)
  1. NICOTROL [Suspect]
     Active Substance: NICOTINE
     Dosage: UNK, AS NEEDED
     Dates: start: 20210917

REACTIONS (6)
  - Headache [Unknown]
  - Nausea [Unknown]
  - Cough [Unknown]
  - Throat irritation [Unknown]
  - Hot flush [Unknown]
  - Pyrexia [Unknown]

NARRATIVE: CASE EVENT DATE: 20210101
